FAERS Safety Report 7357966-X (Version None)
Quarter: 2011Q1

REPORT INFORMATION
  Report Type: 
  Country: None (occurrence: None)
  Receive Date: 20110317
  Receipt Date: 20110315
  Transmission Date: 20110831
  Serious: Yes (Other)
  Sender: FDA-Public Use
  Company Number: US-PFIZER INC-2011057275

PATIENT
  Sex: Female

DRUGS (2)
  1. TYLENOL-500 [Suspect]
     Dosage: UNK
     Route: 048
  2. CELEBREX [Suspect]
     Dosage: 200 MG, 3-4 CAPSULES A DAY
     Route: 048

REACTIONS (3)
  - LARGE INTESTINAL ULCER [None]
  - GASTRIC DISORDER [None]
  - GASTROINTESTINAL DISORDER [None]
